FAERS Safety Report 7826654-5 (Version None)
Quarter: 2011Q4

REPORT INFORMATION
  Report Type: 
  Country: None (occurrence: None)
  Receive Date: 20111018
  Receipt Date: 20111010
  Transmission Date: 20120403
  Serious: Yes (Other)
  Sender: FDA-Public Use
  Company Number: 1000024641

PATIENT
  Sex: Male

DRUGS (2)
  1. BYSTOLIC [Suspect]
     Dosage: 5 MG (5 MG, 1 IN 1 D), ORAL, (10 MG)
     Route: 048
     Dates: start: 20110101, end: 20110101
  2. BYSTOLIC [Suspect]
     Dosage: 10 MG (10 MG, 1 IN 1 D), ORAL
     Route: 048
     Dates: start: 20110101, end: 20111001

REACTIONS (7)
  - FATIGUE [None]
  - PLEURISY [None]
  - CHEST PAIN [None]
  - HYPERHIDROSIS [None]
  - DIZZINESS [None]
  - INSOMNIA [None]
  - DYSPNOEA [None]
